FAERS Safety Report 11086631 (Version 1)
Quarter: 2015Q2

REPORT INFORMATION
  Report Type: Spontaneous
  Country: US (occurrence: None)
  Receive Date: 20150430
  Receipt Date: 20150430
  Transmission Date: 20150821
  Serious: Yes (Death, Hospitalization)
  Sender: FDA-Public Use
  Company Number: INS201504-000142

PATIENT
  Age: 70 Year
  Sex: Female

DRUGS (1)
  1. SUBSYS [Suspect]
     Active Substance: FENTANYL
     Indication: CANCER PAIN

REACTIONS (6)
  - Depressed mood [None]
  - Decreased appetite [None]
  - Asthenia [None]
  - Dysphagia [None]
  - Dysstasia [None]
  - Hospice care [None]

NARRATIVE: CASE EVENT DATE: 20150415
